FAERS Safety Report 12175272 (Version 2)
Quarter: 2016Q2

REPORT INFORMATION
  Report Type: Spontaneous
  Country: US (occurrence: US)
  Receive Date: 20160314
  Receipt Date: 20160610
  Transmission Date: 20160815
  Serious: No
  Sender: FDA-Public Use
  Company Number: US-TEVA-640575USA

PATIENT
  Sex: Female

DRUGS (1)
  1. MIMVEY LO [Suspect]
     Active Substance: ESTRADIOL\NORETHINDRONE ACETATE
     Dosage: 1 MG / 0.5 MG
     Dates: start: 20160206

REACTIONS (4)
  - Menstrual disorder [Recovered/Resolved]
  - Hot flush [Recovered/Resolved]
  - Product quality issue [Unknown]
  - Product substitution issue [Unknown]

NARRATIVE: CASE EVENT DATE: 20160207
